FAERS Safety Report 8153157-3 (Version None)
Quarter: 2012Q1

REPORT INFORMATION
  Report Type: 
  Country: None (occurrence: None)
  Receive Date: 20120103
  Receipt Date: 20111031
  Transmission Date: 20120608
  Serious: No
  Sender: FDA-Public Use
  Company Number: AE-2011-002910

PATIENT
  Age: 40 Year
  Sex: Male
  Weight: 95.2554 kg

DRUGS (4)
  1. INCIVEK [Suspect]
     Dosage: 2250 MG (750 MG,3 IN 1 D),ORAL
     Route: 048
     Dates: start: 20110901
  2. RIBAVIRIN [Concomitant]
  3. PEGASYS [Concomitant]
  4. IBUPROFEN [Concomitant]

REACTIONS (5)
  - EAR DISCOMFORT [None]
  - FATIGUE [None]
  - PYREXIA [None]
  - CONTUSION [None]
  - NAUSEA [None]
